FAERS Safety Report 9436867 (Version 1)
Quarter: 2013Q3

REPORT INFORMATION
  Report Type: Spontaneous
  Country: US (occurrence: US)
  Receive Date: 20130802
  Receipt Date: 20130802
  Transmission Date: 20140515
  Serious: No
  Sender: FDA-Public Use
  Company Number: US-PFIZER INC-2013220996

PATIENT
  Sex: 0

DRUGS (5)
  1. FLAGYL [Suspect]
     Dosage: UNK
  2. VANCOMYCIN HCL [Suspect]
     Dosage: UNK
  3. PLAVIX [Concomitant]
     Dosage: 75 MG, DAILY
  4. ASPIRIN [Concomitant]
     Dosage: 81 MG, DAILY
  5. LASIX [Concomitant]
     Dosage: 20 MG, DAILY

REACTIONS (1)
  - Diarrhoea [Not Recovered/Not Resolved]
